FAERS Safety Report 4723514-3 (Version None)
Quarter: 2005Q3

REPORT INFORMATION
  Report Type: 
  Country: None (occurrence: None)
  Receive Date: 20050721
  Receipt Date: 20050721
  Transmission Date: 20060218
  Serious: Yes (Hospitalization)
  Sender: FDA-Public Use
  Company Number: None

PATIENT
  Age: 37 Year
  Sex: Female
  Weight: 197 kg

DRUGS (15)
  1. INNOHEP [Suspect]
     Indication: DEEP VEIN THROMBOSIS
     Dosage: 34,000 UNITS DAILY SUBCUTANEOUS
     Route: 058
     Dates: start: 20050404, end: 20050408
  2. LOVENOX [Suspect]
     Indication: DEEP VEIN THROMBOSIS
     Dosage: 160MG Q12H SUBCUTANEOUS
     Route: 058
     Dates: start: 20050329, end: 20050403
  3. FUROSEMIDE [Concomitant]
  4. VENLAFAXXINE [Concomitant]
  5. VANCOMYCIN [Concomitant]
  6. CEFAZOLIN [Concomitant]
  7. SIMVASTATIN [Concomitant]
  8. FLONASE [Concomitant]
  9. COMBIVENT [Concomitant]
  10. CALCIUM CARBONATE [Concomitant]
  11. VIT D [Concomitant]
  12. BIASACODYL [Concomitant]
  13. MILK OF MAGNESIA [Concomitant]
  14. PERCOCET [Concomitant]
  15. MORPHINE [Concomitant]

REACTIONS (7)
  - ANAEMIA [None]
  - DYSPNOEA [None]
  - FLANK PAIN [None]
  - HYPOTENSION [None]
  - PNEUMONIA [None]
  - RENAL FAILURE [None]
  - RETROPERITONEAL HAEMATOMA [None]
